FAERS Safety Report 15183055 (Version 1)
Quarter: 2018Q3

REPORT INFORMATION
  Report Type: Spontaneous
  Country: US (occurrence: US)
  Receive Date: 20180723
  Receipt Date: 20180723
  Transmission Date: 20181010
  Serious: No
  Sender: FDA-Public Use
  Company Number: US-009507513-1807USA007843

PATIENT
  Age: 0 Day
  Sex: Female
  Weight: 2.48 kg

DRUGS (5)
  1. LOPINAVIR (+) RITONAVIR [Suspect]
     Active Substance: LOPINAVIR\RITONAVIR
     Route: 064
  2. ISENTRESS [Suspect]
     Active Substance: RALTEGRAVIR POTASSIUM
     Route: 064
  3. ATAZANAVIR. [Suspect]
     Active Substance: ATAZANAVIR SULFATE
     Route: 064
  4. LAMIVUDINE AND ZIDOVUDINE [Suspect]
     Active Substance: LAMIVUDINE\ZIDOVUDINE
     Route: 064
  5. RITONAVIR. [Suspect]
     Active Substance: RITONAVIR
     Route: 064

REACTIONS (2)
  - Small for dates baby [Unknown]
  - Foetal exposure during pregnancy [Recovered/Resolved]

NARRATIVE: CASE EVENT DATE: 20150322
